FAERS Safety Report 23595009 (Version 1)
Quarter: 2024Q1

REPORT INFORMATION
  Report Type: Spontaneous
  Country: IN (occurrence: IN)
  Receive Date: 20240305
  Receipt Date: 20240305
  Transmission Date: 20240410
  Serious: Yes (Death, Other)
  Sender: FDA-Public Use
  Company Number: IN-ASTELLAS-2024US006720

PATIENT
  Sex: Male

DRUGS (1)
  1. PROGRAF [Suspect]
     Active Substance: TACROLIMUS
     Indication: Transplant
     Dosage: UNK UNK, UNKNOWN FREQ.
     Route: 065

REACTIONS (1)
  - Cardiac arrest [Fatal]
